FAERS Safety Report 9688233 (Version 1)
Quarter: 2013Q4

REPORT INFORMATION
  Report Type: Spontaneous
  Country: US (occurrence: None)
  Receive Date: 20131113
  Receipt Date: 20131113
  Transmission Date: 20140711
  Serious: Yes (Other)
  Sender: FDA-Public Use
  Company Number: None

PATIENT
  Age: 58 Year
  Sex: Male

DRUGS (3)
  1. MONTELUKAST SODIUM [Suspect]
     Indication: ANALGESIC ASTHMA SYNDROME
     Dosage: ONCE DAILY
     Dates: start: 20120820, end: 20120917
  2. MONTELUKAST SODIUM [Suspect]
     Indication: MULTIPLE ALLERGIES
     Dosage: ONCE DAILY
     Dates: start: 20120820, end: 20120917
  3. MONTELUKAST SODIUM [Suspect]
     Indication: ASTHMA
     Dosage: ONCE DAILY
     Dates: start: 20120820, end: 20120917

REACTIONS (4)
  - Dyspnoea [None]
  - Asthma [None]
  - Exercise tolerance decreased [None]
  - Product substitution issue [None]
